FAERS Safety Report 22680303 (Version 4)
Quarter: 2023Q4

REPORT INFORMATION
  Report Type: Spontaneous
  Country: US (occurrence: US)
  Receive Date: 20230707
  Receipt Date: 20231009
  Transmission Date: 20240110
  Serious: No
  Sender: FDA-Public Use
  Company Number: US-AMGEN-USASP2023115289

PATIENT
  Sex: Male

DRUGS (3)
  1. OTEZLA [Suspect]
     Active Substance: APREMILAST
     Indication: Psoriasis
     Dosage: 1 DOSAGE FORM, BID
     Route: 065
  2. OTEZLA [Suspect]
     Active Substance: APREMILAST
     Dosage: 1 DOSAGE FORM, QD
     Route: 065
  3. CARAFATE [Concomitant]
     Active Substance: SUCRALFATE
     Indication: Gastrointestinal disorder

REACTIONS (5)
  - Anxiety [Unknown]
  - Weight decreased [Not Recovered/Not Resolved]
  - Alopecia [Unknown]
  - Anaemia [Unknown]
  - Psoriasis [Unknown]
